FAERS Safety Report 7226841-3 (Version None)
Quarter: 2011Q1

REPORT INFORMATION
  Report Type: 
  Country: None (occurrence: None)
  Receive Date: 20110110
  Receipt Date: 20110110
  Transmission Date: 20110831
  Serious: Yes (Other)
  Sender: FDA-Public Use
  Company Number: None

PATIENT
  Age: 61 Year
  Sex: Male
  Weight: 80.2 kg

DRUGS (4)
  1. DOXYCYCLINE [Suspect]
     Indication: ANGIOEDEMA
     Dosage: 100 MG BID PO
     Route: 048
     Dates: start: 20101022, end: 20101025
  2. DOXYCYCLINE [Suspect]
     Indication: RASH
     Dosage: 100 MG BID PO
     Route: 048
     Dates: start: 20101022, end: 20101025
  3. CLINDAMYCIN [Suspect]
     Indication: ANGIOEDEMA
     Dosage: 300 MG QID PO
     Route: 048
     Dates: start: 20101022, end: 20101025
  4. CLINDAMYCIN [Suspect]
     Indication: RASH
     Dosage: 300 MG QID PO
     Route: 048
     Dates: start: 20101022, end: 20101025

REACTIONS (1)
  - ANGIOEDEMA [None]
